FAERS Safety Report 17660846 (Version 1)
Quarter: 2020Q2

REPORT INFORMATION
  Report Type: Spontaneous
  Country: US (occurrence: US)
  Receive Date: 20200411
  Receipt Date: 20200411
  Transmission Date: 20200713
  Serious: Yes (Life-Threatening)
  Sender: FDA-Public Use
  Company Number: None

PATIENT
  Age: 77 Year
  Sex: Female
  Weight: 60.75 kg

DRUGS (4)
  1. LEVOTHYROXIN [Concomitant]
     Active Substance: LEVOTHYROXINE
  2. RIZATRIPTAN. [Concomitant]
     Active Substance: RIZATRIPTAN
  3. MULTIVITAMINS [Concomitant]
     Active Substance: VITAMINS
  4. AIMOVIG [Suspect]
     Active Substance: ERENUMAB-AOOE
     Indication: MIGRAINE
     Dosage: ?          QUANTITY:70 INJECTION(S);OTHER FREQUENCY:MONTHLY;?
     Route: 030
     Dates: start: 20190726, end: 20191226

REACTIONS (2)
  - Dysphagia [None]
  - Constipation [None]

NARRATIVE: CASE EVENT DATE: 20191226
